FAERS Safety Report 7703552-9 (Version None)
Quarter: 2011Q3

REPORT INFORMATION
  Report Type: 
  Country: None (occurrence: None)
  Receive Date: 20110823
  Receipt Date: 20110809
  Transmission Date: 20111222
  Serious: Yes (Hospitalization)
  Sender: FDA-Public Use
  Company Number: PHHY2011FR73065

PATIENT
  Sex: Female

DRUGS (4)
  1. ZOLOFT [Suspect]
     Indication: DEPRESSION
     Dosage: UNK UKN, UNK
     Dates: start: 20110503, end: 20110530
  2. ALDACTAZINE [Concomitant]
     Indication: HYPERTENSION
     Dosage: UNK UKN, UNK
  3. TRILEPTAL [Suspect]
     Dosage: 600 MG IN THE MORNING ADN 300 MGAT NIGH
     Dates: start: 20110427, end: 20110530
  4. HYPERIUM [Suspect]
     Indication: HYPERTENSION
     Dosage: UNK UKN, UNK

REACTIONS (16)
  - PLATELET COUNT INCREASED [None]
  - RASH [None]
  - PHARYNGITIS [None]
  - MOUTH ULCERATION [None]
  - BLOOD ALKALINE PHOSPHATASE INCREASED [None]
  - HERPES ZOSTER [None]
  - CHOLESTASIS [None]
  - LIVER INJURY [None]
  - CYTOLYTIC HEPATITIS [None]
  - GAMMA-GLUTAMYLTRANSFERASE INCREASED [None]
  - HYPOTENSION [None]
  - LEUKOCYTOSIS [None]
  - EOSINOPHILIA [None]
  - RASH MACULO-PAPULAR [None]
  - ALANINE AMINOTRANSFERASE INCREASED [None]
  - DRUG RASH WITH EOSINOPHILIA AND SYSTEMIC SYMPTOMS [None]
